FAERS Safety Report 26033469 (Version 1)
Quarter: 2025Q4

REPORT INFORMATION
  Report Type: Spontaneous
  Country: EU (occurrence: EU)
  Receive Date: 20251112
  Receipt Date: 20251112
  Transmission Date: 20260118
  Serious: Yes (Other)
  Sender: NOVARTIS
  Company Number: EU-002147023-NVSC2025RO172020

PATIENT
  Age: 62 Year
  Sex: Female

DRUGS (5)
  1. KISQALI [Suspect]
     Active Substance: RIBOCICLIB SUCCINATE
     Indication: Breast cancer
     Dosage: 600 MG
     Route: 065
     Dates: start: 202208, end: 202301
  2. KISQALI [Suspect]
     Active Substance: RIBOCICLIB SUCCINATE
     Indication: Metastases to bone
     Dosage: 400 MG
     Route: 065
     Dates: start: 202301, end: 202306
  3. KISQALI [Suspect]
     Active Substance: RIBOCICLIB SUCCINATE
     Dosage: 200 MG
     Route: 065
     Dates: start: 202306
  4. LETROZOLE [Concomitant]
     Active Substance: LETROZOLE
     Indication: Breast cancer
     Dosage: UNK
     Route: 065
     Dates: start: 202208
  5. LETROZOLE [Concomitant]
     Active Substance: LETROZOLE
     Indication: Metastases to bone

REACTIONS (4)
  - Nausea [Unknown]
  - Haematochezia [Unknown]
  - Osteonecrosis of jaw [Unknown]
  - Pruritus [Unknown]

NARRATIVE: CASE EVENT DATE: 20230101
